FAERS Safety Report 9791692 (Version 2)
Quarter: 2014Q1

REPORT INFORMATION
  Report Type: Spontaneous
  Country: US (occurrence: US)
  Receive Date: 20140102
  Receipt Date: 20140102
  Transmission Date: 20141002
  Serious: Yes (Other)
  Sender: FDA-Public Use
  Company Number: US-BEH-2013034656

PATIENT
  Age: 56 Year
  Sex: Female
  Weight: 95 kg

DRUGS (2)
  1. ZEMAIRA [Suspect]
     Indication: ALPHA-1 ANTI-TRYPSIN DEFICIENCY
     Dates: start: 20130131
  2. ZEMAIRA [Suspect]
     Indication: CHRONIC OBSTRUCTIVE PULMONARY DISEASE
     Dosage: 60 MG/KG OR ABOUT 5400 GRAMS

REACTIONS (9)
  - Nerve injury [Recovered/Resolved]
  - Thrombosis [Recovered/Resolved]
  - Mass [Recovered/Resolved]
  - Tenderness [Recovered/Resolved]
  - Burning sensation [Recovered/Resolved]
  - Oropharyngeal pain [Unknown]
  - Respiratory tract congestion [Unknown]
  - Drug therapy [Unknown]
  - Weight increased [Unknown]
